FAERS Safety Report 19652876 (Version 1)
Quarter: 2021Q3

REPORT INFORMATION
  Report Type: Report from Study
  Country: US (occurrence: US)
  Receive Date: 20210803
  Receipt Date: 20210803
  Transmission Date: 20211014
  Serious: Yes (Life-Threatening, Hospitalization, Other)
  Sender: FDA-Public Use
  Company Number: US-BRISTOL-MYERS SQUIBB COMPANY-BMS-2021-071445

PATIENT
  Age: 58 Year
  Sex: Female
  Weight: 55.79 kg

DRUGS (1)
  1. NIVOLUMAB [Suspect]
     Active Substance: NIVOLUMAB
     Indication: MESOTHELIOMA
     Dosage: 240 MILLIGRAM
     Route: 042
     Dates: start: 20210430, end: 20210526

REACTIONS (2)
  - Cardiac tamponade [Recovered/Resolved]
  - Bronchopleural fistula [Unknown]

NARRATIVE: CASE EVENT DATE: 20210713
